FAERS Safety Report 12733488 (Version 8)
Quarter: 2017Q1

REPORT INFORMATION
  Report Type: Report from Study
  Country: IT (occurrence: IT)
  Receive Date: 20160912
  Receipt Date: 20170209
  Transmission Date: 20170428
  Serious: Yes (Hospitalization)
  Sender: FDA-Public Use
  Company Number: IT-B.I. PHARMACEUTICALS,INC./RIDGEFIELD-2016-BI-57666BI

PATIENT
  Age: 46 Year
  Sex: Male
  Weight: 76 kg

DRUGS (13)
  1. BIBF 1120 [Suspect]
     Active Substance: NINTEDANIB
     Indication: SYSTEMIC SCLERODERMA
     Route: 048
     Dates: start: 20160727, end: 20160825
  2. MYCOPHENOLATE MOFETIL. [Suspect]
     Active Substance: MYCOPHENOLATE MOFETIL
     Route: 048
     Dates: start: 20170110
  3. NORVASC [Concomitant]
     Active Substance: AMLODIPINE BESYLATE
     Indication: SYSTEMIC SCLERODERMA
     Route: 048
     Dates: start: 2013
  4. TRENTAL [Concomitant]
     Active Substance: PENTOXIFYLLINE
     Indication: SYSTEMIC SCLERODERMA
     Route: 048
     Dates: start: 2012, end: 20160829
  5. BIBF 1120 [Suspect]
     Active Substance: NINTEDANIB
     Indication: INTERSTITIAL LUNG DISEASE
  6. MYCOPHENOLATE MOFETIL. [Suspect]
     Active Substance: MYCOPHENOLATE MOFETIL
     Indication: SYSTEMIC SCLERODERMA
     Route: 048
     Dates: start: 2012, end: 20160829
  7. NORVASC [Concomitant]
     Active Substance: AMLODIPINE BESYLATE
     Indication: HYPERTENSION
  8. OPSUMIT [Concomitant]
     Active Substance: MACITENTAN
     Indication: PULMONARY HYPERTENSION
     Route: 048
     Dates: start: 201506, end: 20160829
  9. REVATIO [Concomitant]
     Active Substance: SILDENAFIL CITRATE
     Indication: PULMONARY HYPERTENSION
     Route: 048
     Dates: start: 2012
  10. OMEPRAZEN [Concomitant]
     Active Substance: OMEPRAZOLE
     Indication: GASTROOESOPHAGEAL REFLUX DISEASE
     Route: 048
     Dates: start: 2012
  11. CARDIOASPIRIN [Concomitant]
     Active Substance: ASPIRIN
     Indication: SYSTEMIC SCLERODERMA
     Route: 048
     Dates: start: 2012
  12. ZYLORIC [Concomitant]
     Active Substance: ALLOPURINOL
     Indication: NEPHROPATHY
     Route: 048
     Dates: start: 2012
  13. OLPRESS [Concomitant]
     Active Substance: OLMESARTAN MEDOXOMIL
     Indication: HYPERTENSION
     Route: 048
     Dates: start: 2013

REACTIONS (5)
  - Leukopenia [Recovered/Resolved]
  - Pneumonia [Recovered/Resolved]
  - Pneumonia [Recovered/Resolved]
  - Thrombocytopenia [Recovered/Resolved]
  - Leukopenia [Recovered/Resolved]

NARRATIVE: CASE EVENT DATE: 20160822
